FAERS Safety Report 4349274-6 (Version None)
Quarter: 2004Q1

REPORT INFORMATION
  Report Type: 
  Country: None (occurrence: None)
  Receive Date: 20040329
  Receipt Date: 20031124
  Transmission Date: 20041129
  Serious: No
  Sender: FDA-Public Use
  Company Number: USA031153382

PATIENT
  Sex: Male

DRUGS (1)
  1. STRATTERA [Suspect]
     Dates: start: 20030701

REACTIONS (3)
  - AMNESIA [None]
  - ASTHENIA [None]
  - DISTURBANCE IN ATTENTION [None]
